FAERS Safety Report 4700498-5 (Version None)
Quarter: 2005Q2

REPORT INFORMATION
  Report Type: 
  Country: None (occurrence: None)
  Receive Date: 20050627
  Receipt Date: 20050614
  Transmission Date: 20051028
  Serious: Yes (Hospitalization)
  Sender: FDA-Public Use
  Company Number: 2005AC00926

PATIENT
  Age: 86 Year
  Sex: Male

DRUGS (2)
  1. LISINOPRIL [Suspect]
     Indication: HYPERTENSION
     Route: 048
  2. ATORVASTATIN CALCIUM [Interacting]
     Indication: HYPERLIPIDAEMIA

REACTIONS (2)
  - DRUG INTERACTION [None]
  - PANCREATITIS ACUTE [None]
